FAERS Safety Report 24994918 (Version 3)
Quarter: 2025Q2

REPORT INFORMATION
  Report Type: Spontaneous
  Country: US (occurrence: US)
  Receive Date: 20250221
  Receipt Date: 20250409
  Transmission Date: 20250716
  Serious: No
  Sender: BAYER
  Company Number: US-BAYER-2025A021281

PATIENT
  Age: 78 Year
  Sex: Female
  Weight: 58.957 kg

DRUGS (14)
  1. ADEMPAS [Suspect]
     Active Substance: RIOCIGUAT
     Indication: Product used for unknown indication
     Route: 065
     Dates: start: 2023
  2. ADEMPAS [Suspect]
     Active Substance: RIOCIGUAT
     Indication: Product used for unknown indication
     Dates: start: 2025
  3. ADEMPAS [Suspect]
     Active Substance: RIOCIGUAT
     Indication: Product used for unknown indication
     Dates: start: 2025
  4. TYVASO DPI [Suspect]
     Active Substance: TREPROSTINIL
     Indication: Pulmonary arterial hypertension
     Dosage: 48 ?G, QID
     Dates: start: 20230518
  5. TYVASO DPI [Suspect]
     Active Substance: TREPROSTINIL
     Indication: Pulmonary arterial hypertension
     Dosage: 48 ?G, QID
  6. MIDODRINE HYDROCHLORIDE [Concomitant]
     Active Substance: MIDODRINE HYDROCHLORIDE
  7. OMEPRAZOLE [Concomitant]
     Active Substance: OMEPRAZOLE
  8. CITALOPRAM HYDROBROMIDE [Concomitant]
     Active Substance: CITALOPRAM HYDROBROMIDE
  9. CULTURELLE [Concomitant]
     Active Substance: LACTOBACILLUS RHAMNOSUS
  10. LEVOTHYROXINE SODIUM [Concomitant]
     Active Substance: LEVOTHYROXINE SODIUM
  11. LEVALBUTEROL TARTRATE [Concomitant]
     Active Substance: LEVALBUTEROL TARTRATE
  12. ONDANSETRON HYDROCHLORIDE [Concomitant]
     Active Substance: ONDANSETRON HYDROCHLORIDE
  13. VITAMIN C [Concomitant]
     Active Substance: ASCORBIC ACID
  14. ZOFRAN [Concomitant]
     Active Substance: ONDANSETRON HYDROCHLORIDE

REACTIONS (8)
  - Dizziness [Not Recovered/Not Resolved]
  - Influenza like illness [Not Recovered/Not Resolved]
  - Blood pressure decreased [Not Recovered/Not Resolved]
  - Chest discomfort [None]
  - Dizziness postural [None]
  - Nausea [None]
  - Rash [None]
  - Feeling abnormal [None]

NARRATIVE: CASE EVENT DATE: 20230101
